FAERS Safety Report 10348853 (Version 2)
Quarter: 2014Q3

REPORT INFORMATION
  Report Type: Spontaneous
  Country: US (occurrence: US)
  Receive Date: 20140729
  Receipt Date: 20140814
  Transmission Date: 20150326
  Serious: Yes (Hospitalization, Other)
  Sender: FDA-Public Use
  Company Number: US-GILEAD-2014-0110387

PATIENT
  Age: 71 Year
  Sex: Female

DRUGS (5)
  1. REVATIO [Concomitant]
     Active Substance: SILDENAFIL CITRATE
  2. ORENITRAM [Concomitant]
     Active Substance: TREPROSTINIL
     Dosage: 6.25 MG, UNK
     Dates: start: 201407
  3. COUMADIN [Concomitant]
     Active Substance: WARFARIN SODIUM
  4. LETAIRIS [Suspect]
     Active Substance: AMBRISENTAN
     Indication: PRODUCT USED FOR UNKNOWN INDICATION
     Dosage: 10 MG, QD
     Route: 065
     Dates: start: 20140213
  5. TYVASO [Concomitant]
     Active Substance: TREPROSTINIL

REACTIONS (2)
  - Infection [Unknown]
  - Pulmonary arterial hypertension [Unknown]
